FAERS Safety Report 14337086 (Version 1)
Quarter: 2017Q4

REPORT INFORMATION
  Report Type: Spontaneous
  Country: IT (occurrence: IT)
  Receive Date: 20171229
  Receipt Date: 20171229
  Transmission Date: 20180321
  Serious: Yes (Hospitalization)
  Sender: FDA-Public Use
  Company Number: IT-BAYER-2017-249872

PATIENT
  Age: 79 Year
  Sex: Female

DRUGS (9)
  1. CARDIOASPIRIN 100 MG [Suspect]
     Active Substance: ASPIRIN
     Dosage: 100 MG, UNK
     Route: 048
     Dates: start: 20170101, end: 20170417
  2. LYRICA [Concomitant]
     Active Substance: PREGABALIN
  3. METFORMIN [Concomitant]
     Active Substance: METFORMIN HYDROCHLORIDE
  4. ESOMEPRAZOLE [Concomitant]
     Active Substance: ESOMEPRAZOLE
  5. METOPROLOL. [Concomitant]
     Active Substance: METOPROLOL
  6. SERTRALINE [Concomitant]
     Active Substance: SERTRALINE HYDROCHLORIDE
  7. PLAVIX [Suspect]
     Active Substance: CLOPIDOGREL BISULFATE
     Dosage: 75 MG, UNK
     Route: 048
     Dates: start: 20170101, end: 20170417
  8. FOLINA [Concomitant]
     Active Substance: FOLIC ACID
  9. TORVAST [Concomitant]
     Active Substance: ATORVASTATIN

REACTIONS (7)
  - Melaena [Unknown]
  - Duodenal ulcer [Unknown]
  - Gastric haemorrhage [Unknown]
  - Asthenia [Unknown]
  - Dizziness [Unknown]
  - Vomiting [Unknown]
  - Faeces discoloured [Unknown]

NARRATIVE: CASE EVENT DATE: 20170417
